FAERS Safety Report 13267649 (Version 1)
Quarter: 2017Q1

REPORT INFORMATION
  Report Type: Spontaneous
  Country: US (occurrence: US)
  Receive Date: 20170224
  Receipt Date: 20170224
  Transmission Date: 20170428
  Serious: No
  Sender: FDA-Public Use
  Company Number: US-PFIZER INC-2017079162

PATIENT
  Sex: Male

DRUGS (1)
  1. XELJANZ XR [Suspect]
     Active Substance: TOFACITINIB CITRATE
     Dosage: 11 MG, DAILY

REACTIONS (5)
  - Peripheral swelling [Recovering/Resolving]
  - Musculoskeletal discomfort [Recovering/Resolving]
  - Product use issue [Unknown]
  - Pain in extremity [Recovering/Resolving]
  - Joint swelling [Recovering/Resolving]
